FAERS Safety Report 4692266-8 (Version None)
Quarter: 2005Q2

REPORT INFORMATION
  Report Type: 
  Country: None (occurrence: None)
  Receive Date: 20050614
  Receipt Date: 20050601
  Transmission Date: 20051028
  Serious: Yes (Death)
  Sender: FDA-Public Use
  Company Number: 2003186964GB

PATIENT
  Age: 74 Year
  Sex: Female

DRUGS (4)
  1. ARTHROTEC [Suspect]
     Indication: ARTHRITIS
     Dosage: 2 IN 1 D ORAL
     Route: 048
     Dates: start: 20030901
  2. PREDNISONE [Suspect]
     Indication: TEMPORAL ARTERITIS
     Dosage: 10 MG (1 D) ORAL
     Route: 048
     Dates: start: 20030301
  3. ASPIRIN [Suspect]
     Indication: CEREBROVASCULAR ACCIDENT
     Dosage: 75 MG (1 D) ORAL
     Route: 048
     Dates: start: 20030801
  4. CLOPIDOGREL BISULFATE [Suspect]
     Indication: CORONARY ARTERIAL STENT INSERTION
     Dosage: 75 MG ORAL
     Route: 048
     Dates: start: 20031007, end: 20031107

REACTIONS (1)
  - HAEMATEMESIS [None]
